FAERS Safety Report 9154799 (Version 1)
Quarter: 2013Q1

REPORT INFORMATION
  Report Type: Spontaneous
  Country: US (occurrence: None)
  Receive Date: 20130305
  Receipt Date: 20130305
  Transmission Date: 20140127
  Serious: Yes (Other)
  Sender: FDA-Public Use
  Company Number: None

PATIENT
  Sex: Male
  Weight: 25.4 kg

DRUGS (2)
  1. MONTELUKAST SODIUM [Suspect]
     Route: 048
     Dates: start: 20121014, end: 20121015
  2. MONTELUKAST SODIUM [Suspect]
     Route: 048
     Dates: start: 20121014, end: 20121015

REACTIONS (2)
  - Vomiting [None]
  - Product substitution issue [None]
